FAERS Safety Report 8314335-3 (Version None)
Quarter: 2012Q2

REPORT INFORMATION
  Report Type: 
  Country: None (occurrence: None)
  Receive Date: 20120426
  Receipt Date: 20120419
  Transmission Date: 20120825
  Serious: Yes (Hospitalization)
  Sender: FDA-Public Use
  Company Number: CA-ROCHE-1031606

PATIENT
  Sex: Male

DRUGS (14)
  1. FUROSEMIDE [Concomitant]
     Dates: start: 19900101
  2. RAMIPRIL [Concomitant]
     Dates: start: 19900101
  3. ASPIRIN [Concomitant]
     Dates: start: 19900101
  4. PLAVIX [Concomitant]
     Dates: start: 19900101
  5. GLYBURIDE [Concomitant]
     Dates: start: 20000101
  6. RANIBIZUMAB [Suspect]
     Route: 050
     Dates: start: 20120124, end: 20120124
  7. RANIBIZUMAB [Suspect]
     Indication: DIABETIC RETINAL OEDEMA
     Route: 050
     Dates: start: 20111207, end: 20111207
  8. LIPITOR [Concomitant]
     Dates: start: 19900101
  9. METOPROLOL TARTRATE [Concomitant]
     Dates: start: 19900101
  10. GLUCOBAY [Concomitant]
     Dates: start: 20000101
  11. METFORMIN HCL [Concomitant]
     Dates: start: 20000101
  12. FLOMAX [Concomitant]
     Dates: start: 20020101
  13. PROCAL [Concomitant]
     Dates: start: 20060101
  14. JANUVIA [Concomitant]
     Dates: start: 20000101

REACTIONS (3)
  - COLITIS ISCHAEMIC [None]
  - HYPOKALAEMIA [None]
  - INTESTINAL OBSTRUCTION [None]
